FAERS Safety Report 7520543-1 (Version None)
Quarter: 2011Q2

REPORT INFORMATION
  Report Type: 
  Country: None (occurrence: None)
  Receive Date: 20110602
  Receipt Date: 20110518
  Transmission Date: 20111010
  Serious: Yes (Hospitalization)
  Sender: FDA-Public Use
  Company Number: JP-AMGEN-JPNSP2011018606

PATIENT
  Age: 40 Year
  Sex: Male
  Weight: 51 kg

DRUGS (7)
  1. OMEPRAZOLE [Concomitant]
     Route: 048
     Dates: start: 20030101
  2. OMEPRAZOLE [Concomitant]
     Indication: GASTRITIS
     Dosage: 20 MG, UNK
     Route: 048
  3. GASMOTIN [Concomitant]
     Indication: GASTRITIS
     Route: 048
     Dates: start: 20030101
  4. LOSARTAN POTASSIUM [Concomitant]
     Indication: HYPERTENSION
     Route: 048
     Dates: start: 20030101
  5. MUCOSTA [Concomitant]
     Indication: GASTRITIS
     Route: 048
     Dates: start: 20030101
  6. ALLOID G [Concomitant]
     Indication: GASTRITIS
     Route: 048
     Dates: start: 20030101
  7. CINACALCET HYDROCHLORIDE [Suspect]
     Indication: HYPERPARATHYROIDISM SECONDARY
     Dosage: 50 MG, QD
     Route: 048
     Dates: start: 20081001, end: 20101208

REACTIONS (1)
  - INTESTINAL OBSTRUCTION [None]
